FAERS Safety Report 19419658 (Version 1)
Quarter: 2021Q2

REPORT INFORMATION
  Report Type: Other
  Country: CA (occurrence: CA)
  Receive Date: 20210615
  Receipt Date: 20210615
  Transmission Date: 20210717
  Serious: Yes (Death)
  Sender: FDA-Public Use
  Company Number: CA-CELLTRION INC.-2021CA007978

PATIENT

DRUGS (24)
  1. AMLODIPINE [Concomitant]
     Active Substance: AMLODIPINE BESYLATE
  2. MELATONIN [Concomitant]
     Active Substance: MELATONIN
  3. TYLENOL [Concomitant]
     Active Substance: ACETAMINOPHEN
     Indication: PREMEDICATION
     Dosage: 650.0 MILLIGRAM
     Route: 048
  4. CARVEDILOL. [Concomitant]
     Active Substance: CARVEDILOL
     Route: 065
  5. CLOPIDOGREL BISULPHATE [Concomitant]
     Active Substance: CLOPIDOGREL BISULFATE
  6. INNOHEP [Concomitant]
     Active Substance: TINZAPARIN SODIUM
  7. METOPROLOL. [Concomitant]
     Active Substance: METOPROLOL
  8. PANTOPRAZOLE [Concomitant]
     Active Substance: PANTOPRAZOLE
  9. RITUXIMAB (UNKNOWN) [Suspect]
     Active Substance: RITUXIMAB
     Indication: ANTIPHOSPHOLIPID SYNDROME
     Dosage: UNK
     Route: 042
  10. RITUXIMAB (UNKNOWN) [Suspect]
     Active Substance: RITUXIMAB
     Dosage: 1000.0 MILLIGRAM, 1 EVERY 15 DAYS
     Route: 042
  11. ACETYLSALICYLIC ACID [Concomitant]
     Active Substance: ASPIRIN
     Route: 065
  12. FLUDROCORTISONE ACETATE. [Concomitant]
     Active Substance: FLUDROCORTISONE ACETATE
  13. ADVAIR HFA [Concomitant]
     Active Substance: FLUTICASONE PROPIONATE\SALMETEROL XINAFOATE
  14. INSULIN [Concomitant]
     Active Substance: INSULIN NOS
  15. LASIX [Concomitant]
     Active Substance: FUROSEMIDE
  16. ALENDRONATE SODIUM. [Concomitant]
     Active Substance: ALENDRONATE SODIUM
  17. FUROSEMIDE. [Concomitant]
     Active Substance: FUROSEMIDE
     Route: 065
  18. METHYLPREDNISOLONE SODIUM SUCCINATE. [Concomitant]
     Active Substance: METHYLPREDNISOLONE SODIUM SUCCINATE
     Indication: PREMEDICATION
     Dosage: 100.0 MILLIGRAM
     Route: 042
  19. SODIUM BICARBONATE. [Concomitant]
     Active Substance: SODIUM BICARBONATE
  20. CALCIUM [Concomitant]
     Active Substance: CALCIUM
  21. CLONIDINE. [Concomitant]
     Active Substance: CLONIDINE
  22. PREDNISONE. [Concomitant]
     Active Substance: PREDNISONE
  23. ATORVASTATIN [Concomitant]
     Active Substance: ATORVASTATIN
  24. BENADRYL [Concomitant]
     Active Substance: DIPHENHYDRAMINE HYDROCHLORIDE
     Indication: PREMEDICATION
     Dosage: 50.0 MILLIGRAM
     Route: 048

REACTIONS (2)
  - Death [Fatal]
  - Off label use [Unknown]
